FAERS Safety Report 9210389 (Version 1)
Quarter: 2013Q2

REPORT INFORMATION
  Report Type: Spontaneous
  Country: US (occurrence: US)
  Receive Date: 20130404
  Receipt Date: 20130404
  Transmission Date: 20140414
  Serious: No
  Sender: FDA-Public Use
  Company Number: US-BAYER-2013-041859

PATIENT
  Age: 46 Year
  Sex: Female
  Weight: 72.56 kg

DRUGS (1)
  1. BETASERON [Suspect]
     Indication: MULTIPLE SCLEROSIS
     Dosage: 0.25 MG (1ML), QOD
     Route: 058
     Dates: start: 20081008

REACTIONS (1)
  - Injection site erythema [Unknown]
